FAERS Safety Report 9486827 (Version 1)
Quarter: 2013Q3

REPORT INFORMATION
  Report Type: Spontaneous
  Country: FR (occurrence: FR)
  Receive Date: 20130829
  Receipt Date: 20130829
  Transmission Date: 20140515
  Serious: Yes (Hospitalization)
  Sender: FDA-Public Use
  Company Number: FR-JNJFOC-20130815128

PATIENT
  Age: 33 Year
  Sex: Female

DRUGS (2)
  1. SIMPONI [Suspect]
     Indication: ANKYLOSING SPONDYLITIS
     Route: 058
     Dates: start: 201307
  2. SIMPONI [Suspect]
     Indication: ANKYLOSING SPONDYLITIS
     Route: 058
     Dates: start: 20130805, end: 20130805

REACTIONS (5)
  - Eyelid oedema [Recovered/Resolved]
  - Dysphagia [Recovered/Resolved]
  - Skin oedema [Recovered/Resolved]
  - Oral mucosal eruption [Recovered/Resolved]
  - Chest discomfort [Recovered/Resolved]
